FAERS Safety Report 10050654 (Version 2)
Quarter: 2014Q2

REPORT INFORMATION
  Report Type: Spontaneous
  Country: US (occurrence: US)
  Receive Date: 20140401
  Receipt Date: 20140401
  Transmission Date: 20141212
  Serious: No
  Sender: FDA-Public Use
  Company Number: US-ASTRAZENECA-2013SE51472

PATIENT
  Sex: Male

DRUGS (5)
  1. NEXIUM [Suspect]
     Indication: GASTROOESOPHAGEAL REFLUX DISEASE
     Route: 048
     Dates: start: 20130702
  2. ASPIRIN [Concomitant]
     Route: 048
  3. VITAMINS [Concomitant]
     Dosage: DAILY
     Route: 048
  4. HERBS [Concomitant]
     Dosage: DAILY
     Route: 048
  5. DOCUSATE SODIUM [Concomitant]
     Indication: FAECES HARD
     Route: 048

REACTIONS (2)
  - Haematochezia [Unknown]
  - Diarrhoea [Recovered/Resolved]
